FAERS Safety Report 7511407-8 (Version None)
Quarter: 2011Q2

REPORT INFORMATION
  Report Type: 
  Country: None (occurrence: None)
  Receive Date: 20110531
  Receipt Date: 20110517
  Transmission Date: 20111010
  Serious: Yes (Other)
  Sender: FDA-Public Use
  Company Number: PHHY2011MX43498

PATIENT
  Age: 40 Year
  Sex: Female

DRUGS (2)
  1. DIOVAN HCT [Suspect]
     Indication: HYPERTENSION
     Dosage: 80 MG VALS AND 12.5 MG (1 DF PER DAY)
     Dates: start: 20080101
  2. DIOVAN HCT [Suspect]
     Dosage: 80 MG VALS AND 12.5 MG (2 DF PER DAY)
     Dates: start: 20110401

REACTIONS (4)
  - HEART RATE INCREASED [None]
  - ASPHYXIA [None]
  - PARAESTHESIA [None]
  - BLOOD PRESSURE INCREASED [None]
